FAERS Safety Report 6723945-6 (Version None)
Quarter: 2010Q2

REPORT INFORMATION
  Report Type: 
  Country: None (occurrence: None)
  Receive Date: 20100513
  Receipt Date: 20100415
  Transmission Date: 20101027
  Serious: Yes (Hospitalization)
  Sender: FDA-Public Use
  Company Number: PHEH2010US03081

PATIENT
  Sex: Female

DRUGS (5)
  1. CLOZARIL [Suspect]
     Dosage: UNK
  2. FLUPHENAZINE [Concomitant]
  3. GABAPENTIN [Concomitant]
  4. COGENTIN [Concomitant]
  5. LAMICTAL [Concomitant]

REACTIONS (1)
  - PSYCHOTIC DISORDER [None]
